FAERS Safety Report 4856120-0 (Version None)
Quarter: 2005Q4

REPORT INFORMATION
  Report Type: 
  Country: None (occurrence: None)
  Receive Date: 20051216
  Receipt Date: 20030605
  Transmission Date: 20060501
  Serious: Yes (Hospitalization, Disabling)
  Sender: FDA-Public Use
  Company Number: US-MERCK-0306USA00611

PATIENT
  Age: 41 Year
  Sex: Female
  Weight: 84 kg

DRUGS (12)
  1. VIOXX [Suspect]
     Indication: ARTHRITIS
     Route: 048
     Dates: start: 20000101, end: 20030101
  2. VIOXX [Suspect]
     Route: 048
     Dates: end: 20010901
  3. VIOXX [Suspect]
     Route: 048
     Dates: start: 20000701, end: 20020201
  4. VIOXX [Suspect]
     Indication: OSTEOARTHRITIS
     Route: 048
     Dates: start: 20000101, end: 20030101
  5. VIOXX [Suspect]
     Route: 048
     Dates: end: 20010901
  6. VIOXX [Suspect]
     Route: 048
     Dates: start: 20000701, end: 20020201
  7. DEPAKOTE [Concomitant]
     Route: 065
  8. FOLIC ACID [Concomitant]
     Route: 065
  9. AMBIEN [Concomitant]
     Route: 065
  10. LASIX [Concomitant]
     Route: 065
  11. COUMADIN [Concomitant]
     Route: 065
  12. ZOLOFT [Concomitant]
     Route: 065

REACTIONS (64)
  - ABDOMINAL ABSCESS [None]
  - ABDOMINAL PAIN [None]
  - ABDOMINAL PAIN LOWER [None]
  - ACCIDENTAL OVERDOSE [None]
  - ANGINA PECTORIS [None]
  - ANXIETY [None]
  - APPETITE DISORDER [None]
  - ARTHRALGIA [None]
  - ASTHENIA [None]
  - ATELECTASIS [None]
  - BACK PAIN [None]
  - BLOOD PRESSURE INCREASED [None]
  - BRAIN OEDEMA [None]
  - BRONCHITIS [None]
  - BRONCHITIS ACUTE [None]
  - BRONCHITIS CHRONIC [None]
  - CEREBROVASCULAR ACCIDENT [None]
  - COMPLEX PARTIAL SEIZURES [None]
  - CONSTIPATION [None]
  - DEEP VEIN THROMBOSIS [None]
  - DEPRESSION [None]
  - DERMATITIS [None]
  - DIABETES MELLITUS [None]
  - DIARRHOEA [None]
  - DIZZINESS [None]
  - DYSPEPSIA [None]
  - DYSPNOEA [None]
  - DYSURIA [None]
  - EAR PAIN [None]
  - ECZEMA [None]
  - ELECTROCARDIOGRAM QT PROLONGED [None]
  - FALL [None]
  - FATIGUE [None]
  - FEMORAL NECK FRACTURE [None]
  - HAEMATOCHEZIA [None]
  - HEPATIC STEATOSIS [None]
  - HYPOTHYROIDISM [None]
  - INCREASED TENDENCY TO BRUISE [None]
  - INSOMNIA [None]
  - IRRITABLE BOWEL SYNDROME [None]
  - MUSCLE SPASMS [None]
  - MYOFASCITIS [None]
  - NASAL CONGESTION [None]
  - NIGHT SWEATS [None]
  - OEDEMA [None]
  - OEDEMA PERIPHERAL [None]
  - OSTEOPOROSIS [None]
  - PAIN [None]
  - PAIN IN EXTREMITY [None]
  - PERIPHERAL VASCULAR DISORDER [None]
  - PHLEBITIS [None]
  - PNEUMONIA [None]
  - RESPIRATORY TRACT INFECTION [None]
  - SEASONAL ALLERGY [None]
  - SINUSITIS [None]
  - SKIN LESION [None]
  - STRESS [None]
  - SUBDURAL HAEMATOMA [None]
  - SWELLING [None]
  - THROMBOSIS [None]
  - UPPER RESPIRATORY TRACT INFECTION [None]
  - URINARY TRACT INFECTION [None]
  - VERTIGO [None]
  - WHITE BLOOD CELL COUNT INCREASED [None]
